APPROVED DRUG PRODUCT: AMMONIUM LACTATE
Active Ingredient: AMMONIUM LACTATE
Strength: EQ 12% BASE
Dosage Form/Route: LOTION;TOPICAL
Application: A075570 | Product #001 | TE Code: AB
Applicant: PADAGIS ISRAEL PHARMACEUTICALS LTD
Approved: Jun 23, 2004 | RLD: No | RS: Yes | Type: RX